FAERS Safety Report 4655505-5 (Version None)
Quarter: 2005Q2

REPORT INFORMATION
  Report Type: 
  Country: None (occurrence: None)
  Receive Date: 20050505
  Receipt Date: 20050421
  Transmission Date: 20051028
  Serious: Yes (Other)
  Sender: FDA-Public Use
  Company Number: 2005047061

PATIENT
  Age: 67 Year
  Sex: Female
  Weight: 170 kg

DRUGS (9)
  1. NORVASC [Suspect]
     Indication: HYPERTENSION
     Dosage: 5 MG (5 MG, 1 IN 1 D), ORAL
     Route: 048
  2. HYDROCHLOROTHIAZIDE [Concomitant]
  3. POTASSIUM CHLORIDE [Concomitant]
  4. CLONIDINE [Concomitant]
  5. DOXAZOSIN (DOXAZOSIN) [Concomitant]
  6. OMEPRAZOLE [Concomitant]
  7. ESOMEPRAZOLE (ESOMEPRAZOLE) [Concomitant]
  8. VENLAFAXINE HCL [Concomitant]
  9. SALBUTAMOL (SALBUTAMOL) [Concomitant]

REACTIONS (2)
  - BLOOD PRESSURE INADEQUATELY CONTROLLED [None]
  - BREAST CANCER FEMALE [None]
